FAERS Safety Report 8103003-9 (Version None)
Quarter: 2012Q1

REPORT INFORMATION
  Report Type: 
  Country: None (occurrence: None)
  Receive Date: 20120201
  Receipt Date: 20120127
  Transmission Date: 20120608
  Serious: Yes (Death, Life-Threatening, Hospitalization, Other)
  Sender: FDA-Public Use
  Company Number: JP-SANOFI-AVENTIS-2011SA059598

PATIENT
  Age: 70 Year
  Sex: Male

DRUGS (5)
  1. ASPIRIN [Concomitant]
     Route: 048
     Dates: start: 20091214, end: 20110830
  2. RABEPRAZOLE SODIUM [Concomitant]
     Indication: GASTRITIS
     Route: 048
     Dates: start: 20091214, end: 20110830
  3. SIGMART [Concomitant]
     Indication: ANGINA PECTORIS
     Route: 048
     Dates: start: 20010719, end: 20110704
  4. PLAVIX [Suspect]
     Route: 048
     Dates: start: 20100219, end: 20110830
  5. AMARYL [Suspect]
     Indication: TYPE 2 DIABETES MELLITUS
     Route: 048
     Dates: start: 20110217, end: 20110830

REACTIONS (14)
  - PRURITUS [None]
  - ABDOMINAL PAIN [None]
  - ALANINE AMINOTRANSFERASE INCREASED [None]
  - HEPATIC FAILURE [None]
  - PROTHROMBIN LEVEL DECREASED [None]
  - YELLOW SKIN [None]
  - RASH [None]
  - JAUNDICE [None]
  - ASTHENIA [None]
  - LIVER DISORDER [None]
  - BLOOD BILIRUBIN INCREASED [None]
  - RENAL FAILURE [None]
  - ASPARTATE AMINOTRANSFERASE INCREASED [None]
  - ARTHRALGIA [None]
